FAERS Safety Report 17335998 (Version 1)
Quarter: 2020Q1

REPORT INFORMATION
  Report Type: Spontaneous
  Country: US (occurrence: US)
  Receive Date: 20200128
  Receipt Date: 20200128
  Transmission Date: 20200409
  Serious: Yes (Death)
  Sender: FDA-Public Use
  Company Number: US-PFIZER INC-2020035854

PATIENT
  Age: 72 Year
  Sex: Female

DRUGS (1)
  1. CHANTIX [Suspect]
     Active Substance: VARENICLINE TARTRATE
     Dosage: UNK
     Route: 048

REACTIONS (6)
  - Renal disorder [Unknown]
  - Acute kidney injury [Fatal]
  - Chronic obstructive pulmonary disease [Unknown]
  - Depression [Unknown]
  - Anxiety [Unknown]
  - Hypertension [Unknown]
